FAERS Safety Report 9805835 (Version 1)
Quarter: 2014Q1

REPORT INFORMATION
  Report Type: Report from Study
  Country: US (occurrence: US)
  Receive Date: 20140109
  Receipt Date: 20140109
  Transmission Date: 20141002
  Serious: Yes (Other)
  Sender: FDA-Public Use
  Company Number: PHEH2014US000709

PATIENT
  Sex: Female
  Weight: 118 kg

DRUGS (8)
  1. TASIGNA [Suspect]
     Indication: CHRONIC MYELOID LEUKAEMIA
     Dosage: 400 MG, BID
     Route: 048
     Dates: start: 20131206
  2. FUROSEMIDE [Concomitant]
  3. DIOVAN [Concomitant]
  4. LEVEMIR [Concomitant]
  5. KLOR-CON M20 [Concomitant]
  6. PROAIR HFA [Concomitant]
     Dosage: 90 UG, UNK
  7. HYDROCODONE/ACETAMINOPHEN [Concomitant]
  8. PREVACID [Concomitant]

REACTIONS (3)
  - Hyperglycaemia [Unknown]
  - Rash [Unknown]
  - Abdominal discomfort [Unknown]
